FAERS Safety Report 23401781 (Version 3)
Quarter: 2025Q1

REPORT INFORMATION
  Report Type: Report from Study
  Country: US (occurrence: US)
  Receive Date: 20240115
  Receipt Date: 20250113
  Transmission Date: 20250408
  Serious: Yes (Hospitalization)
  Sender: AMNEAL
  Company Number: US-AMNEAL PHARMACEUTICALS-2023-AMRX-04607

PATIENT
  Age: 74 Year
  Sex: Male

DRUGS (12)
  1. CARBIDOPA\LEVODOPA [Suspect]
     Active Substance: CARBIDOPA\LEVODOPA
     Indication: Product used for unknown indication
     Dosage: 48.75-195 MG, 03 CAPSULES BY MOUTH 03 TIMES A DAY
     Route: 048
  2. CARBIDOPA\LEVODOPA [Suspect]
     Active Substance: CARBIDOPA\LEVODOPA
     Dosage: 48.75-195, 02 CAPSULES, 5X/DAY
     Route: 048
     Dates: start: 20230307
  3. CARBIDOPA\LEVODOPA [Suspect]
     Active Substance: CARBIDOPA\LEVODOPA
     Dosage: 48.75-195 MG, 03 CAPSULES BY MOUTH AT 07AM, 03 CASPULES BY MOUTH AT 11 AM, 02 CAPSULES BY MOUTH AT 0
     Route: 048
     Dates: start: 20230414
  4. CARBIDOPA\LEVODOPA [Suspect]
     Active Substance: CARBIDOPA\LEVODOPA
     Dosage: 61.25-245 MG 02 CAPSULES BY MOUTH 4 TIMES A DAY
     Route: 048
     Dates: start: 20230815
  5. CARBIDOPA\LEVODOPA [Suspect]
     Active Substance: CARBIDOPA\LEVODOPA
     Route: 048
  6. CARBIDOPA\LEVODOPA [Suspect]
     Active Substance: CARBIDOPA\LEVODOPA
     Dosage: 61.25-245 MG 02 CAPSULES BY MOUTH 4 TIMES A DAY AT 07AM, 11AM, 04PM, AND 09PM
     Route: 048
     Dates: start: 20230815
  7. CARBIDOPA\LEVODOPA [Suspect]
     Active Substance: CARBIDOPA\LEVODOPA
     Dosage: 61.25-245 MG TAKE 3 CAPSULES THREE TIMES A DAY TAKE 2 CAPSULES IN THE EVENING
     Route: 048
     Dates: start: 20241216
  8. CARBIDOPA\LEVODOPA [Suspect]
     Active Substance: CARBIDOPA\LEVODOPA
     Dosage: 61.25-245 MG 02 CAPSULES BY MOUTH 4 TIMES A DAY AT 07AM, 11AM, 04PM, AND 09PM
     Route: 048
  9. CARBIDOPA\LEVODOPA [Suspect]
     Active Substance: CARBIDOPA\LEVODOPA
     Route: 048
     Dates: start: 20241217
  10. CARBIDOPA\LEVODOPA [Suspect]
     Active Substance: CARBIDOPA\LEVODOPA
     Dosage: 61.25-245 MG 02 CAPSULES BY MOUTH 4 TIMES A DAY AT 07AM, 11AM, 04PM, AND 09PM
     Route: 048
  11. CARBIDOPA\LEVODOPA [Suspect]
     Active Substance: CARBIDOPA\LEVODOPA
     Dosage: 61.25-245 MG 02 CAPSULES, 5X/DAY
     Route: 048
  12. CARBIDOPA\LEVODOPA [Suspect]
     Active Substance: CARBIDOPA\LEVODOPA
     Route: 048
     Dates: start: 20241220

REACTIONS (8)
  - Asthenia [Unknown]
  - Hypokinesia [Unknown]
  - Gait disturbance [Recovered/Resolved]
  - Pain [Unknown]
  - Tremor [Not Recovered/Not Resolved]
  - Feeling abnormal [Not Recovered/Not Resolved]
  - Overdose [Unknown]
  - Product use issue [Unknown]

NARRATIVE: CASE EVENT DATE: 20241215
